FAERS Safety Report 9888076 (Version 1)
Quarter: 2014Q1

REPORT INFORMATION
  Report Type: Spontaneous
  Country: CO (occurrence: None)
  Receive Date: 20140207
  Receipt Date: 20140207
  Transmission Date: 20141002
  Serious: Yes (Other)
  Sender: FDA-Public Use
  Company Number: DSU-2014-00221

PATIENT
  Age: 57 Year
  Sex: Male

DRUGS (1)
  1. OLMETEC (OLMESARTAN MEDOXOMIL) (TABLET) (OLMESARTAN MEDOXOMIL) [Suspect]
     Indication: HYPERTENSION
     Route: 048

REACTIONS (3)
  - Nephrolithiasis [None]
  - Bacterial infection [None]
  - Medical device complication [None]
